FAERS Safety Report 8792826 (Version 1)
Quarter: 2012Q4

REPORT INFORMATION
  Report Type: 
  Country: US (occurrence: US)
  Receive Date: 20120918
  Receipt Date: 20120918
  Transmission Date: 20130627
  Serious: Yes (Hospitalization)
  Sender: FDA-Public Use
  Company Number: US-009507513-1209USA003496

PATIENT

DRUGS (4)
  1. ISENTRESS [Suspect]
     Route: 048
  2. NORVIR [Suspect]
     Route: 048
  3. INTELENCE [Suspect]
  4. PREZISTA [Suspect]
     Route: 048

REACTIONS (2)
  - Body temperature increased [Unknown]
  - Transaminases increased [Unknown]
